FAERS Safety Report 5289579-8 (Version None)
Quarter: 2007Q2

REPORT INFORMATION
  Report Type: 
  Country: None (occurrence: None)
  Receive Date: 20070406
  Receipt Date: 20070329
  Transmission Date: 20071010
  Serious: Yes (Death)
  Sender: FDA-Public Use
  Company Number: JP-ROCHE-491190

PATIENT
  Age: 20 Year
  Sex: Female
  Weight: 56 kg

DRUGS (1)
  1. TAMIFLU [Suspect]
     Route: 048
     Dates: start: 20070321, end: 20070322

REACTIONS (2)
  - ACUTE RESPIRATORY FAILURE [None]
  - CARDIAC FAILURE ACUTE [None]
